FAERS Safety Report 24613914 (Version 1)
Quarter: 2024Q4

REPORT INFORMATION
  Report Type: Spontaneous
  Country: DE (occurrence: DE)
  Receive Date: 20241113
  Receipt Date: 20241113
  Transmission Date: 20250115
  Serious: Yes (Hospitalization, Other)
  Sender: AUROBINDO
  Company Number: DE-CADRBFARM-2024331508

PATIENT
  Age: 21 Year
  Sex: Female
  Weight: 60 kg

DRUGS (3)
  1. QUETIAPINE [Suspect]
     Active Substance: QUETIAPINE
     Indication: Bipolar disorder
     Dosage: 10 MILLIGRAM
     Route: 048
     Dates: start: 20190128, end: 20190201
  2. QUETIAPINE [Suspect]
     Active Substance: QUETIAPINE
     Indication: Tension
  3. MIRTAZAPINE [Concomitant]
     Active Substance: MIRTAZAPINE
     Indication: Product used for unknown indication
     Dosage: UNK
     Route: 065

REACTIONS (8)
  - Suicide attempt [Unknown]
  - Intentional self-injury [Recovered/Resolved]
  - Restless legs syndrome [Recovered/Resolved]
  - Depression [Recovered/Resolved]
  - Tension [Recovered/Resolved]
  - Emotional disorder [Recovered/Resolved]
  - Dissociation [Recovered/Resolved]
  - Impulse-control disorder [Recovered/Resolved]

NARRATIVE: CASE EVENT DATE: 20190128
